FAERS Safety Report 7175164-X (Version None)
Quarter: 2010Q4

REPORT INFORMATION
  Report Type: 
  Country: None (occurrence: None)
  Receive Date: 20101220
  Receipt Date: 20100225
  Transmission Date: 20110411
  Serious: No
  Sender: FDA-Public Use
  Company Number: US-AMGEN-TCS395558

PATIENT

DRUGS (1)
  1. ENBREL [Suspect]
     Indication: PSORIASIS
     Dosage: 50 MG, QWK
     Route: 058

REACTIONS (6)
  - DRY EYE [None]
  - EYE DISCHARGE [None]
  - EYE INFECTION BACTERIAL [None]
  - NAIL DISORDER [None]
  - ONYCHOCLASIS [None]
  - VISUAL IMPAIRMENT [None]
